FAERS Safety Report 12325765 (Version 2)
Quarter: 2019Q2

REPORT INFORMATION
  Report Type: Spontaneous
  Country: GB (occurrence: GB)
  Receive Date: 20160503
  Receipt Date: 20190520
  Transmission Date: 20190711
  Serious: No
  Sender: FDA-Public Use
  Company Number: GB-LUPIN PHARMACEUTICALS INC.-2015-02171

PATIENT
  Age: 39 Year
  Sex: Female

DRUGS (2)
  1. FLUOXETINE [Interacting]
     Active Substance: FLUOXETINE HYDROCHLORIDE
     Indication: DEPRESSION
     Dosage: UNK UNK,UNK,UNKNOWN
     Route: 065
  2. QUETIAPINE. [Suspect]
     Active Substance: QUETIAPINE
     Indication: DEPRESSION
     Dosage: 250 MG, QD
     Route: 065
     Dates: start: 201411

REACTIONS (2)
  - Restless legs syndrome [Recovered/Resolved]
  - Drug interaction [Unknown]
